FAERS Safety Report 6561970-9 (Version None)
Quarter: 2010Q1

REPORT INFORMATION
  Report Type: 
  Country: None (occurrence: None)
  Receive Date: 20100130
  Receipt Date: 20091222
  Transmission Date: 20100710
  Serious: No
  Sender: FDA-Public Use
  Company Number: US-ABBOTT-08P-163-0495358-00

PATIENT
  Sex: Female

DRUGS (5)
  1. HUMIRA [Suspect]
     Indication: CROHN'S DISEASE
     Route: 058
     Dates: start: 20080201, end: 20081116
  2. FLAGYL [Suspect]
     Indication: DRUG USE FOR UNKNOWN INDICATION
     Dates: start: 20080818
  3. PREDNISONE [Suspect]
     Indication: DRUG USE FOR UNKNOWN INDICATION
     Dates: start: 20080818
  4. ZANTAC [Concomitant]
     Indication: GASTRIC DISORDER
  5. ENDOCORT [Concomitant]
     Indication: HAEMATOCHEZIA
     Dates: start: 20081101

REACTIONS (6)
  - CLOSTRIDIAL INFECTION [None]
  - DIARRHOEA [None]
  - FREQUENT BOWEL MOVEMENTS [None]
  - HAEMATOCHEZIA [None]
  - MUSCLE SPASMS [None]
  - WEIGHT DECREASED [None]
